FAERS Safety Report 22051896 (Version 1)
Quarter: 2023Q1

REPORT INFORMATION
  Report Type: Spontaneous
  Country: US (occurrence: US)
  Receive Date: 20230302
  Receipt Date: 20230302
  Transmission Date: 20230418
  Serious: No
  Sender: FDA-Public Use
  Company Number: US-BAUSCHBL-2023BNL001520

PATIENT
  Age: 80 Year
  Sex: Male

DRUGS (2)
  1. HYDROCORTISONE\NEOMYCIN SULFATE\POLYMYXIN B SULFATE [Suspect]
     Active Substance: HYDROCORTISONE\NEOMYCIN SULFATE\POLYMYXIN B SULFATE
     Indication: Ear pain
     Dosage: 4 DROPS 3 TIMES DAILY IN THE LEFT EAR
     Route: 001
     Dates: start: 20230215
  2. SYSTANE (HYPROMELLOSE 2910 (4000 MPA.S)) [Concomitant]
     Active Substance: HYPROMELLOSE 2910 (4000 MPA.S)
     Indication: Product used for unknown indication
     Dosage: BUT DID NOT USE THEM AT THE SAME TIME WITH SUSPECT

REACTIONS (2)
  - Vision blurred [Recovered/Resolved]
  - Metamorphopsia [Recovered/Resolved]

NARRATIVE: CASE EVENT DATE: 20230220
